FAERS Safety Report 15818848 (Version 2)
Quarter: 2019Q1

REPORT INFORMATION
  Report Type: Report from Study
  Country: JP (occurrence: JP)
  Receive Date: 20190113
  Receipt Date: 20190304
  Transmission Date: 20190417
  Serious: Yes (Death, Life-Threatening, Other)
  Sender: FDA-Public Use
  Company Number: JP-AMGEN-JPNSP2015103659

PATIENT
  Age: 75 Year
  Sex: Female
  Weight: 44 kg

DRUGS (46)
  1. PREDONINE [Suspect]
     Active Substance: PREDNISOLONE
     Indication: IMMUNE THROMBOCYTOPENIC PURPURA
     Dosage: 5-15 MG, UNK
     Route: 048
     Dates: start: 20150611
  2. SEROQUEL [Concomitant]
     Active Substance: QUETIAPINE FUMARATE
     Indication: NEUROSIS
     Dosage: UNK
     Route: 048
  3. HALFDIGOXIN [Concomitant]
     Active Substance: DIGOXIN
     Indication: ATRIAL FIBRILLATION
     Dosage: UNK
     Route: 048
  4. ROMIPLOSTIM [Suspect]
     Active Substance: ROMIPLOSTIM
     Dosage: 3 MUG/KG, UNK
     Route: 058
     Dates: start: 20151019
  5. PREDONINE [Suspect]
     Active Substance: PREDNISOLONE
     Dosage: 7.5 MG, UNK
     Route: 048
     Dates: start: 20151020
  6. METHYLPREDNISOLONE. [Suspect]
     Active Substance: METHYLPREDNISOLONE
     Dosage: 30 MG, UNK
     Route: 065
     Dates: start: 20160314, end: 20160314
  7. VENOGLOBULIN IH [Concomitant]
     Active Substance: HUMAN IMMUNOGLOBULIN G
     Indication: IMMUNE THROMBOCYTOPENIC PURPURA
     Dosage: 10000 MG, UNK
     Route: 065
     Dates: start: 20160305, end: 20160311
  8. REVOLADE [Concomitant]
     Active Substance: ELTROMBOPAG
     Indication: IMMUNE THROMBOCYTOPENIC PURPURA
     Dosage: 25 MG
     Route: 048
     Dates: start: 20160208, end: 20160218
  9. DAIPHEN [Concomitant]
     Active Substance: SULFAMETHOXAZOLE\TRIMETHOPRIM
     Indication: PROPHYLAXIS
     Dosage: UNK
     Route: 048
  10. ROMIPLOSTIM [Suspect]
     Active Substance: ROMIPLOSTIM
     Indication: IMMUNE THROMBOCYTOPENIC PURPURA
     Dosage: 3 MUG/KG, UNK
     Route: 058
     Dates: start: 20150625, end: 20150625
  11. LEVOFLOXACIN HEMIHYDRATE [Concomitant]
     Active Substance: LEVOFLOXACIN
     Indication: ENTEROCOLITIS
     Dosage: UNK
     Route: 065
  12. FOIPAN [Concomitant]
     Active Substance: CAMOSTAT MESYLATE
     Indication: PANCREATITIS CHRONIC
     Dosage: UNK
     Route: 048
  13. GOREISAN [Concomitant]
     Active Substance: HERBALS
     Indication: SUBDURAL HYGROMA
     Dosage: UNK
     Route: 048
  14. REVOLADE [Concomitant]
     Active Substance: ELTROMBOPAG
     Dosage: 50 MG
     Route: 048
     Dates: start: 20160220, end: 20160320
  15. HUMULIN R [Concomitant]
     Active Substance: INSULIN HUMAN
     Indication: DIABETES MELLITUS
     Dosage: UNK
     Route: 058
  16. ROMIPLOSTIM [Suspect]
     Active Substance: ROMIPLOSTIM
     Dosage: 3 MUG/KG, QWK
     Route: 058
     Dates: start: 20150803, end: 20150921
  17. METHYLPREDNISOLONE. [Suspect]
     Active Substance: METHYLPREDNISOLONE
     Indication: IMMUNE THROMBOCYTOPENIC PURPURA
     Dosage: 1000 MG, UNK
     Route: 065
     Dates: start: 20160310, end: 20160312
  18. PRIMPERAN [Concomitant]
     Active Substance: METOCLOPRAMIDE HYDROCHLORIDE
     Indication: DIZZINESS
     Dosage: UNK
     Route: 065
  19. EVISTA [Concomitant]
     Active Substance: RALOXIFENE HYDROCHLORIDE
     Indication: OSTEOPOROSIS
     Dosage: UNK
     Route: 048
  20. GLICLAZIDE [Concomitant]
     Active Substance: GLICLAZIDE
     Indication: DIABETES MELLITUS
     Dosage: UNK
     Route: 048
  21. REVOLADE [Concomitant]
     Active Substance: ELTROMBOPAG
     Dosage: 37.5 MG
     Route: 048
     Dates: start: 20160219, end: 20160219
  22. PREDONINE [Suspect]
     Active Substance: PREDNISOLONE
     Dosage: 6 MG, UNK
     Route: 048
     Dates: start: 20150611, end: 20150831
  23. METHYLPREDNISOLONE. [Suspect]
     Active Substance: METHYLPREDNISOLONE
     Dosage: 40 MG, UNK
     Route: 065
     Dates: start: 20160313, end: 20160313
  24. NEXIUM [Concomitant]
     Active Substance: ESOMEPRAZOLE MAGNESIUM
     Indication: GASTROOESOPHAGEAL REFLUX DISEASE
     Dosage: UNK
     Route: 048
  25. PANTOSIN [Concomitant]
     Active Substance: PANTETHINE
     Indication: HYPERLIPIDAEMIA
     Dosage: UNK
     Route: 065
  26. RENIVACE [Concomitant]
     Active Substance: ENALAPRIL
     Indication: HYPERTENSION
     Dosage: UNK
     Route: 048
  27. PREDONINE [Suspect]
     Active Substance: PREDNISOLONE
     Dosage: 15 MG, UNK
     Route: 048
     Dates: start: 20150925, end: 20151005
  28. JANUVIA [Concomitant]
     Active Substance: SITAGLIPTIN PHOSPHATE
     Indication: DIABETES MELLITUS
     Dosage: UNK
     Route: 048
  29. NAUZELIN [Concomitant]
     Active Substance: DOMPERIDONE
     Indication: ENTEROCOLITIS
     Dosage: UNK
     Route: 065
  30. CEPHADOL [Concomitant]
     Active Substance: DIPHENIDOL HYDROCHLORIDE
     Indication: DIZZINESS
     Dosage: UNK
     Route: 048
  31. LENDORMIN [Concomitant]
     Active Substance: BROTIZOLAM
     Indication: NEUROSIS
     Dosage: UNK
     Route: 048
  32. RITUXAN [Concomitant]
     Active Substance: RITUXIMAB
     Indication: IMMUNE THROMBOCYTOPENIC PURPURA
     Dosage: 500 MG, QWK
     Route: 065
     Dates: start: 20160307, end: 20160314
  33. ROMIPLOSTIM [Suspect]
     Active Substance: ROMIPLOSTIM
     Dosage: 10 MUG/KG, QWK
     Route: 058
     Dates: start: 20160116, end: 20160206
  34. IMURAN [Suspect]
     Active Substance: AZATHIOPRINE
     Indication: IMMUNE THROMBOCYTOPENIC PURPURA
     Dosage: 100 MG, BID
     Route: 048
     Dates: start: 20150611
  35. PREDONINE [Suspect]
     Active Substance: PREDNISOLONE
     Dosage: 5 MG, UNK
     Route: 048
     Dates: start: 20150901, end: 20150924
  36. PREDONINE [Suspect]
     Active Substance: PREDNISOLONE
     Dosage: 10 MG, UNK
     Route: 048
     Dates: start: 20151006, end: 20151019
  37. BIO-THREE [Concomitant]
     Active Substance: HERBALS
     Indication: ENTEROCOLITIS
     Dosage: UNK
     Route: 048
  38. PRIMPERAN [Concomitant]
     Active Substance: METOCLOPRAMIDE HYDROCHLORIDE
     Indication: ENTEROCOLITIS
  39. CRESTOR [Concomitant]
     Active Substance: ROSUVASTATIN CALCIUM
     Indication: HYPERLIPIDAEMIA
     Dosage: UNK
     Route: 048
  40. SEPAZON [Concomitant]
     Active Substance: CLOXAZOLAM
     Indication: NEUROSIS
     Dosage: UNK
     Route: 048
  41. DEPAS (ETIZOLAM) [Concomitant]
     Active Substance: ETIZOLAM
     Indication: NEUROSIS
     Dosage: UNK
     Route: 048
  42. ROMIPLOSTIM [Suspect]
     Active Substance: ROMIPLOSTIM
     Dosage: 5 MUG/KG, QWK
     Route: 058
     Dates: start: 20150928, end: 20151012
  43. METHYLPREDNISOLONE. [Suspect]
     Active Substance: METHYLPREDNISOLONE
     Dosage: 20 MG, UNK
     Route: 065
     Dates: start: 20160315, end: 20160316
  44. GLIMICRON [Concomitant]
     Active Substance: GLICLAZIDE
     Indication: DIABETES MELLITUS
     Dosage: UNK
     Route: 048
  45. MERISLON [Concomitant]
     Active Substance: BETAHISTINE MESILATE
     Indication: DIZZINESS
     Dosage: UNK
     Route: 048
  46. CEPHADOL [Concomitant]
     Active Substance: DIPHENIDOL HYDROCHLORIDE
     Indication: DIZZINESS

REACTIONS (5)
  - Iron deficiency anaemia [Recovered/Resolved]
  - Urinary tract infection [Recovered/Resolved]
  - Septic shock [Recovering/Resolving]
  - Cerebral haemorrhage [Fatal]
  - Platelet count decreased [Recovered/Resolved]

NARRATIVE: CASE EVENT DATE: 20150907
